FAERS Safety Report 9290783 (Version 1)
Quarter: 2013Q2

REPORT INFORMATION
  Report Type: Spontaneous
  Country: US (occurrence: US)
  Receive Date: 20130515
  Receipt Date: 20130515
  Transmission Date: 20140414
  Serious: Yes (Hospitalization)
  Sender: FDA-Public Use
  Company Number: US-CELGENEUS-163-21880-13051233

PATIENT
  Age: 65 Year
  Sex: Female

DRUGS (2)
  1. REVLIMID [Suspect]
     Indication: PLASMA CELL MYELOMA
     Dosage: 25 MILLIGRAM
     Dates: start: 201110
  2. REVLIMID [Suspect]
     Dosage: 10 MILLIGRAM
     Dates: start: 201207

REACTIONS (2)
  - Small cell lung cancer [Recovered/Resolved]
  - Gastrointestinal haemorrhage [Recovered/Resolved]
